FAERS Safety Report 7158000-7 (Version None)
Quarter: 2010Q4

REPORT INFORMATION
  Report Type: 
  Country: None (occurrence: None)
  Receive Date: 20101214
  Receipt Date: 20100419
  Transmission Date: 20110411
  Serious: No
  Sender: FDA-Public Use
  Company Number: US-ASTRAZENECA-2010SE17305

PATIENT
  Sex: Female

DRUGS (7)
  1. CRESTOR [Suspect]
     Route: 048
  2. LISINOPRIL [Concomitant]
  3. TRIAMTERENE [Concomitant]
  4. LEVOTHYROXINE SODIUM [Concomitant]
  5. WARFARIN SODIUM [Concomitant]
  6. CLONIDINE [Concomitant]
  7. HYDRALAXINE [Concomitant]

REACTIONS (1)
  - PARAESTHESIA [None]
